FAERS Safety Report 4297485-0 (Version None)
Quarter: 2004Q1

REPORT INFORMATION
  Report Type: 
  Country: None (occurrence: None)
  Receive Date: 20040218
  Receipt Date: 20031208
  Transmission Date: 20041129
  Serious: Yes (Hospitalization)
  Sender: FDA-Public Use
  Company Number: FR-GLAXOSMITHKLINE-B0316993A

PATIENT
  Age: 16 Year
  Sex: Female
  Weight: 40 kg

DRUGS (3)
  1. DEROXAT [Suspect]
     Indication: DEPRESSION
     Dosage: 20MG PER DAY
     Route: 048
     Dates: start: 20031114, end: 20031212
  2. ATARAX [Concomitant]
     Indication: ANXIETY
     Dosage: 25MG SEE DOSAGE TEXT
     Route: 048
     Dates: start: 20031128, end: 20031212
  3. NOCTAMIDE [Concomitant]
     Indication: INSOMNIA
     Dosage: 2MG PER DAY
     Route: 048
     Dates: start: 20031128, end: 20031212

REACTIONS (2)
  - DRUG INEFFECTIVE [None]
  - SUICIDE ATTEMPT [None]
